FAERS Safety Report 13279009 (Version 1)
Quarter: 2017Q1

REPORT INFORMATION
  Report Type: Spontaneous
  Country: US (occurrence: US)
  Receive Date: 20170228
  Receipt Date: 20170228
  Transmission Date: 20170428
  Serious: No
  Sender: FDA-Public Use
  Company Number: US-ALLERGAN-1679456US

PATIENT
  Sex: Female
  Weight: 96.6 kg

DRUGS (11)
  1. CHLORDIAZEPOXIDE W/CLIDINIUM [Concomitant]
     Indication: IRRITABLE BOWEL SYNDROME
     Dosage: 1 DF, BID
     Dates: start: 1970
  2. CENTRUM SILVER [Suspect]
     Active Substance: MINERALS\VITAMINS
     Indication: WEIGHT DECREASED
     Dosage: 2 DF, UNK
     Route: 048
     Dates: start: 201001, end: 20161111
  3. BIOTIN [Concomitant]
     Active Substance: BIOTIN
     Indication: WEIGHT DECREASED
     Dosage: 7500 ?G, BID
     Route: 048
     Dates: start: 20100129
  4. CREATINE MONOHYDRATE [Concomitant]
     Active Substance: CREATINE MONOHYDRATE
     Indication: PAIN
  5. SAVELLA [Suspect]
     Active Substance: MILNACIPRAN HYDROCHLORIDE
     Indication: FIBROMYALGIA
     Dosage: 100 MG, BID
     Route: 048
     Dates: start: 2007
  6. NORTRIPTYLINE [Concomitant]
     Active Substance: NORTRIPTYLINE
     Indication: ANXIETY
     Dosage: 75 MG, UNK
     Route: 048
  7. PROPANOLOL [Concomitant]
     Active Substance: PROPRANOLOL HYDROCHLORIDE
     Indication: MIGRAINE
     Dosage: 20 MG, UNK
     Dates: start: 1986
  8. VITAMIN D3 [Concomitant]
     Active Substance: CHOLECALCIFEROL
     Indication: WEIGHT DECREASED
     Dosage: 1000 UNITS, QD
     Route: 048
     Dates: start: 201004
  9. CREATINE MONOHYDRATE [Concomitant]
     Active Substance: CREATINE MONOHYDRATE
     Indication: ENERGY INCREASED
     Dosage: 1.5 G, QD
     Dates: start: 2013
  10. ZOLPIDEM TARTATE [Concomitant]
     Active Substance: ZOLPIDEM TARTRATE
     Indication: FIBROMYALGIA
     Dosage: 12.5 MG, QHS
     Route: 048
  11. VITAMIN B12 [Concomitant]
     Active Substance: CYANOCOBALAMIN
     Indication: IRON DEFICIENCY
     Dosage: 2500 ?G, QD
     Route: 060
     Dates: start: 20100129

REACTIONS (3)
  - Incorrect product storage [Unknown]
  - Weight abnormal [Unknown]
  - Dysgeusia [Unknown]

NARRATIVE: CASE EVENT DATE: 2007
